FAERS Safety Report 11620583 (Version 1)
Quarter: 2015Q4

REPORT INFORMATION
  Report Type: Spontaneous
  Country: FR (occurrence: FR)
  Receive Date: 20151012
  Receipt Date: 20151012
  Transmission Date: 20160304
  Serious: Yes (Other)
  Sender: FDA-Public Use
  Company Number: FR-BAYER-2015-412951

PATIENT
  Age: 79 Year
  Sex: Female
  Weight: 55 kg

DRUGS (6)
  1. IMOVANE [Suspect]
     Active Substance: ZOPICLONE
     Dosage: 1 DF, UNK
     Dates: start: 20040219
  2. ALPRAZOLAM. [Concomitant]
     Active Substance: ALPRAZOLAM
     Dosage: 1 DF, QD
     Dates: start: 2004
  3. CIFLOX [Suspect]
     Active Substance: CIPROFLOXACIN
     Indication: ABSCESS
  4. PENTASA [Concomitant]
     Active Substance: MESALAMINE
     Indication: DIVERTICULITIS
     Dosage: 1 DF, TID
     Dates: start: 200402
  5. MIANSERIN [Concomitant]
     Active Substance: MIANSERIN
     Dosage: 1 DF, QD
     Dates: start: 2004
  6. CIFLOX [Suspect]
     Active Substance: CIPROFLOXACIN
     Indication: DIVERTICULITIS
     Dosage: 500 MG, BID
     Route: 048
     Dates: start: 20040219, end: 20040424

REACTIONS (9)
  - Pain in extremity [None]
  - Rotator cuff syndrome [None]
  - Tendon rupture [None]
  - Rotator cuff syndrome [None]
  - Lipoatrophy [None]
  - Tendonitis [Not Recovered/Not Resolved]
  - Therapy cessation [None]
  - Tendon rupture [None]
  - Rotator cuff syndrome [None]

NARRATIVE: CASE EVENT DATE: 2004
